FAERS Safety Report 23637972 (Version 2)
Quarter: 2024Q1

REPORT INFORMATION
  Report Type: Spontaneous
  Country: PL (occurrence: PL)
  Receive Date: 20240315
  Receipt Date: 20240329
  Transmission Date: 20240410
  Serious: Yes (Other)
  Sender: FDA-Public Use
  Company Number: None

PATIENT
  Sex: Male

DRUGS (95)
  1. CISPLATIN [Suspect]
     Active Substance: CISPLATIN
     Dosage: 200 MG
     Route: 042
     Dates: start: 20221122, end: 20221122
  2. CISPLATIN [Suspect]
     Active Substance: CISPLATIN
     Dosage: 200 MG
     Route: 042
     Dates: start: 20230103, end: 20230103
  3. CISPLATIN [Suspect]
     Active Substance: CISPLATIN
     Dosage: 200 MG
     Route: 042
     Dates: start: 20230210, end: 20230210
  4. CISPLATIN [Suspect]
     Active Substance: CISPLATIN
     Dosage: 200 MG
     Route: 042
     Dates: start: 20230307, end: 20230307
  5. CISPLATIN [Suspect]
     Active Substance: CISPLATIN
     Dosage: 60 MG
     Route: 042
     Dates: start: 20230501, end: 20230501
  6. CISPLATIN [Suspect]
     Active Substance: CISPLATIN
     Dosage: 60 MG
     Route: 042
     Dates: start: 20230525, end: 20230525
  7. CISPLATIN [Suspect]
     Active Substance: CISPLATIN
     Indication: Product used for unknown indication
     Dosage: 70 MG
     Route: 042
     Dates: start: 20230423, end: 20230423
  8. CISPLATIN [Suspect]
     Active Substance: CISPLATIN
     Dosage: 70 MG
     Route: 042
     Dates: start: 20230429, end: 20230429
  9. CISPLATIN [Suspect]
     Active Substance: CISPLATIN
     Dosage: 70 MG
     Route: 042
     Dates: start: 20230430, end: 20230430
  10. CISPLATIN [Suspect]
     Active Substance: CISPLATIN
     Dosage: 70 MG
     Route: 042
     Dates: start: 20230524, end: 20230524
  11. DEXAMETHASONE [Suspect]
     Active Substance: DEXAMETHASONE
     Indication: Product used for unknown indication
     Dosage: UNK
     Route: 065
     Dates: start: 20230210, end: 20230210
  12. DEXAMETHASONE [Suspect]
     Active Substance: DEXAMETHASONE
     Dosage: UNK
     Route: 065
     Dates: start: 20221122, end: 20221122
  13. DEXAMETHASONE [Suspect]
     Active Substance: DEXAMETHASONE
     Dosage: UNK
     Route: 065
     Dates: start: 20230103, end: 20230103
  14. DEXAMETHASONE [Suspect]
     Active Substance: DEXAMETHASONE
     Dosage: UNK
     Route: 065
     Dates: start: 20230307, end: 20230307
  15. DEXAMETHASONE [Suspect]
     Active Substance: DEXAMETHASONE
     Dosage: UNK
     Route: 065
     Dates: start: 20230429, end: 20230429
  16. DEXAMETHASONE [Suspect]
     Active Substance: DEXAMETHASONE
     Dosage: UNK
     Route: 065
     Dates: start: 20230523, end: 20230523
  17. EMEND [Suspect]
     Active Substance: APREPITANT
     Indication: Product used for unknown indication
     Dosage: UNK
     Route: 048
     Dates: start: 20230307, end: 20230307
  18. EMEND [Suspect]
     Active Substance: APREPITANT
     Dosage: UNK
     Route: 048
     Dates: start: 20221122, end: 20221122
  19. EMEND [Suspect]
     Active Substance: APREPITANT
     Dosage: UNK
     Route: 048
     Dates: start: 20230103, end: 20230103
  20. EMEND [Suspect]
     Active Substance: APREPITANT
     Dosage: UNK
     Route: 048
     Dates: start: 20230210, end: 20230210
  21. EMEND [Suspect]
     Active Substance: APREPITANT
     Dosage: UNK
     Route: 048
     Dates: start: 20230429, end: 20230429
  22. EMEND [Suspect]
     Active Substance: APREPITANT
     Dosage: UNK
     Route: 048
     Dates: start: 20230523, end: 20230523
  23. FLUOROURACIL [Suspect]
     Active Substance: FLUOROURACIL
     Indication: Product used for unknown indication
     Dosage: 2000 MG
     Route: 042
     Dates: start: 20230309, end: 20230309
  24. FLUOROURACIL [Suspect]
     Active Substance: FLUOROURACIL
     Dosage: 2000 MG
     Route: 042
     Dates: start: 20221122, end: 20221122
  25. FLUOROURACIL [Suspect]
     Active Substance: FLUOROURACIL
     Dosage: 2000 MG
     Route: 042
     Dates: start: 20221123, end: 20221123
  26. FLUOROURACIL [Suspect]
     Active Substance: FLUOROURACIL
     Dosage: 2000 MG
     Route: 042
     Dates: start: 20221124, end: 20221124
  27. FLUOROURACIL [Suspect]
     Active Substance: FLUOROURACIL
     Dosage: 2000 MG
     Route: 042
     Dates: start: 20230104, end: 20230104
  28. FLUOROURACIL [Suspect]
     Active Substance: FLUOROURACIL
     Dosage: 2000 MG
     Route: 042
     Dates: start: 20230105, end: 20230105
  29. FLUOROURACIL [Suspect]
     Active Substance: FLUOROURACIL
     Dosage: 2000 MG
     Route: 042
     Dates: start: 20230106, end: 20230106
  30. FLUOROURACIL [Suspect]
     Active Substance: FLUOROURACIL
     Dosage: 2000 MG
     Route: 042
     Dates: start: 20230210, end: 20230210
  31. FLUOROURACIL [Suspect]
     Active Substance: FLUOROURACIL
     Dosage: 2000 MG
     Route: 042
     Dates: start: 20230211, end: 20230211
  32. FLUOROURACIL [Suspect]
     Active Substance: FLUOROURACIL
     Dosage: 2000 MG
     Route: 042
     Dates: start: 20230212, end: 20230212
  33. FLUOROURACIL [Suspect]
     Active Substance: FLUOROURACIL
     Dosage: 2000 MG
     Route: 042
     Dates: start: 20230213, end: 20230213
  34. FLUOROURACIL [Suspect]
     Active Substance: FLUOROURACIL
     Dosage: 2000 MG
     Route: 042
     Dates: start: 20230307, end: 20230307
  35. FLUOROURACIL [Suspect]
     Active Substance: FLUOROURACIL
     Dosage: 2000 MG
     Route: 042
     Dates: start: 20230308, end: 20230308
  36. FLUOROURACIL [Suspect]
     Active Substance: FLUOROURACIL
     Dosage: 2000 MG
     Route: 042
     Dates: start: 20230310, end: 20230310
  37. FLUOROURACIL [Suspect]
     Active Substance: FLUOROURACIL
     Dosage: 2000 MG (IV, 24 HOURS INFUSION)
     Route: 042
     Dates: start: 20221125, end: 20221125
  38. FLUOROURACIL [Suspect]
     Active Substance: FLUOROURACIL
     Dosage: 2000 MG IV
     Route: 042
     Dates: start: 20230103, end: 20230103
  39. FUROSEMIDE [Suspect]
     Active Substance: FUROSEMIDE
     Indication: Product used for unknown indication
     Dosage: UNK
     Route: 065
     Dates: start: 20230103, end: 20230103
  40. FUROSEMIDE [Suspect]
     Active Substance: FUROSEMIDE
     Dosage: UNK
     Route: 065
     Dates: start: 20220307, end: 20220307
  41. FUROSEMIDE [Suspect]
     Active Substance: FUROSEMIDE
     Dosage: UNK
     Route: 065
     Dates: start: 20221122, end: 20221122
  42. FUROSEMIDE [Suspect]
     Active Substance: FUROSEMIDE
     Dosage: UNK
     Route: 065
     Dates: start: 20230210, end: 20230210
  43. FUROSEMIDE [Suspect]
     Active Substance: FUROSEMIDE
     Dosage: UNK
     Route: 065
     Dates: start: 20230429, end: 20230429
  44. FUROSEMIDE [Suspect]
     Active Substance: FUROSEMIDE
     Dosage: UNK
     Route: 065
     Dates: start: 20230523, end: 20230523
  45. POTASSIUM CHLORIDE [Suspect]
     Active Substance: POTASSIUM CHLORIDE
     Indication: Product used for unknown indication
     Dosage: UNK
     Route: 065
     Dates: start: 20221122, end: 20221122
  46. POTASSIUM CHLORIDE [Suspect]
     Active Substance: POTASSIUM CHLORIDE
     Dosage: UNK
     Route: 065
     Dates: start: 20230103, end: 20230103
  47. POTASSIUM CHLORIDE [Suspect]
     Active Substance: POTASSIUM CHLORIDE
     Dosage: UNK
     Route: 065
     Dates: start: 20230210, end: 20230210
  48. POTASSIUM CHLORIDE [Suspect]
     Active Substance: POTASSIUM CHLORIDE
     Dosage: UNK
     Route: 065
     Dates: start: 20230307, end: 20230307
  49. POTASSIUM CHLORIDE [Suspect]
     Active Substance: POTASSIUM CHLORIDE
     Dosage: UNK
     Route: 065
     Dates: start: 20230429, end: 20230429
  50. POTASSIUM CHLORIDE [Suspect]
     Active Substance: POTASSIUM CHLORIDE
     Dosage: UNK
     Route: 065
     Dates: start: 20230523, end: 20230523
  51. POTASSIUM CHLORIDE [Suspect]
     Active Substance: POTASSIUM CHLORIDE
     Dosage: UNK
     Route: 065
  52. POTASSIUM CHLORIDE [Suspect]
     Active Substance: POTASSIUM CHLORIDE
     Dosage: UNK
     Route: 065
  53. MAGNESIUM SULFATE [Suspect]
     Active Substance: MAGNESIUM SULFATE\MAGNESIUM SULFATE HEPTAHYDRATE
     Indication: Product used for unknown indication
     Dosage: UNK
     Route: 042
     Dates: start: 20230523, end: 20230523
  54. MAGNESIUM SULFATE [Suspect]
     Active Substance: MAGNESIUM SULFATE\MAGNESIUM SULFATE HEPTAHYDRATE
     Dosage: UNK
     Route: 042
     Dates: start: 20221122, end: 20221122
  55. MAGNESIUM SULFATE [Suspect]
     Active Substance: MAGNESIUM SULFATE\MAGNESIUM SULFATE HEPTAHYDRATE
     Dosage: UNK
     Route: 042
     Dates: start: 20230103, end: 20230103
  56. MAGNESIUM SULFATE [Suspect]
     Active Substance: MAGNESIUM SULFATE\MAGNESIUM SULFATE HEPTAHYDRATE
     Dosage: UNK
     Route: 042
     Dates: start: 20230210, end: 20230210
  57. MAGNESIUM SULFATE [Suspect]
     Active Substance: MAGNESIUM SULFATE\MAGNESIUM SULFATE HEPTAHYDRATE
     Dosage: UNK
     Route: 042
     Dates: start: 20230307, end: 20230307
  58. MAGNESIUM SULFATE [Suspect]
     Active Substance: MAGNESIUM SULFATE\MAGNESIUM SULFATE HEPTAHYDRATE
     Dosage: UNK
     Route: 042
     Dates: start: 20230429, end: 20230429
  59. MAGNESIUM SULFATE [Suspect]
     Active Substance: MAGNESIUM SULFATE\MAGNESIUM SULFATE HEPTAHYDRATE
     Dosage: UNK
     Route: 065
  60. MANNITOL [Suspect]
     Active Substance: MANNITOL
     Indication: Product used for unknown indication
     Dosage: UNK
     Route: 065
     Dates: start: 20221122, end: 20221122
  61. MANNITOL [Suspect]
     Active Substance: MANNITOL
     Dosage: UNK
     Route: 065
     Dates: start: 20230103, end: 20230103
  62. MANNITOL [Suspect]
     Active Substance: MANNITOL
     Dosage: UNK
     Route: 065
     Dates: start: 20230210, end: 20230210
  63. MANNITOL [Suspect]
     Active Substance: MANNITOL
     Dosage: UNK
     Route: 065
     Dates: start: 20230307, end: 20230307
  64. MANNITOL [Suspect]
     Active Substance: MANNITOL
     Dosage: UNK
     Route: 065
     Dates: start: 20230429, end: 20230429
  65. MANNITOL [Suspect]
     Active Substance: MANNITOL
     Dosage: UNK
     Route: 065
     Dates: start: 20230523, end: 20230523
  66. METOCLOPRAMIDE [Suspect]
     Active Substance: METOCLOPRAMIDE
     Indication: Product used for unknown indication
     Dosage: UNK
     Route: 065
     Dates: start: 20230210, end: 20230210
  67. METOCLOPRAMIDE [Suspect]
     Active Substance: METOCLOPRAMIDE
     Dosage: UNK
     Route: 065
     Dates: start: 20221111, end: 20221111
  68. METOCLOPRAMIDE [Suspect]
     Active Substance: METOCLOPRAMIDE
     Dosage: UNK
     Route: 065
     Dates: start: 20221122, end: 20221122
  69. METOCLOPRAMIDE [Suspect]
     Active Substance: METOCLOPRAMIDE
     Dosage: UNK
     Route: 065
     Dates: start: 20230103, end: 20230103
  70. METOCLOPRAMIDE [Suspect]
     Active Substance: METOCLOPRAMIDE
     Dosage: UNK
     Route: 065
     Dates: start: 20230210, end: 20230210
  71. METOCLOPRAMIDE [Suspect]
     Active Substance: METOCLOPRAMIDE
     Dosage: UNK
     Route: 065
     Dates: start: 20230307, end: 20230307
  72. METOCLOPRAMIDE [Suspect]
     Active Substance: METOCLOPRAMIDE
     Dosage: UNK
     Route: 065
     Dates: start: 20230429, end: 20230429
  73. METOCLOPRAMIDE [Suspect]
     Active Substance: METOCLOPRAMIDE
     Dosage: UNK
     Route: 065
     Dates: start: 20230503, end: 20230523
  74. METOCLOPRAMIDE [Suspect]
     Active Substance: METOCLOPRAMIDE
     Dosage: UNK
     Route: 065
     Dates: start: 20230523, end: 20230523
  75. METOCLOPRAMIDE [Suspect]
     Active Substance: METOCLOPRAMIDE
     Dosage: UNK
     Route: 065
  76. PEMBROLIZUMAB [Suspect]
     Active Substance: PEMBROLIZUMAB
     Dosage: 200 MG
     Route: 042
     Dates: start: 20220812, end: 20220812
  77. PEMBROLIZUMAB [Suspect]
     Active Substance: PEMBROLIZUMAB
     Dosage: 200 MG IV DOSE 6
     Route: 042
     Dates: start: 20230403, end: 20230403
  78. PEMBROLIZUMAB [Suspect]
     Active Substance: PEMBROLIZUMAB
     Dosage: 200 MG IV, 4TH DOSE
     Route: 042
     Dates: start: 20230210, end: 20230210
  79. PEMBROLIZUMAB [Suspect]
     Active Substance: PEMBROLIZUMAB
     Indication: Product used for unknown indication
     Dosage: 200 MG IV, 5TH DOSE
     Route: 042
     Dates: start: 20230307, end: 20230307
  80. PEMBROLIZUMAB [Suspect]
     Active Substance: PEMBROLIZUMAB
     Dosage: 200 MG IV, 7TH DOSE
     Route: 042
     Dates: start: 20230429, end: 20230429
  81. PEMBROLIZUMAB [Suspect]
     Active Substance: PEMBROLIZUMAB
     Dosage: 200 MG IV, 9 DOSE
     Route: 042
     Dates: start: 20230613, end: 20230613
  82. PEMBROLIZUMAB [Suspect]
     Active Substance: PEMBROLIZUMAB
     Dosage: 200 MG IV,8TH CYCLE
     Route: 042
     Dates: start: 20230523, end: 20230523
  83. PEMBROLIZUMAB [Suspect]
     Active Substance: PEMBROLIZUMAB
     Dosage: 200 MG, 2ND DOSE
     Route: 042
     Dates: start: 20221208, end: 20221208
  84. PEMBROLIZUMAB [Suspect]
     Active Substance: PEMBROLIZUMAB
     Dosage: 200 MG, 3RD DOSE
     Route: 042
     Dates: start: 20230103, end: 20230103
  85. PEMBROLIZUMAB [Suspect]
     Active Substance: PEMBROLIZUMAB
     Dosage: 200 MILLIGRAM, 1SR DOSE
     Route: 042
     Dates: start: 20221122, end: 20221122
  86. PEMBROLIZUMAB [Suspect]
     Active Substance: PEMBROLIZUMAB
     Dosage: UNK
     Route: 065
  87. ZOFRAN [Suspect]
     Active Substance: ONDANSETRON HYDROCHLORIDE
     Indication: Product used for unknown indication
     Dosage: UNK
     Route: 065
     Dates: start: 20230429, end: 20230429
  88. ZOFRAN [Suspect]
     Active Substance: ONDANSETRON HYDROCHLORIDE
     Dosage: UNK
     Route: 065
     Dates: start: 20221122, end: 20221122
  89. ZOFRAN [Suspect]
     Active Substance: ONDANSETRON HYDROCHLORIDE
     Dosage: UNK
     Route: 065
     Dates: start: 20230103, end: 20230103
  90. ZOFRAN [Suspect]
     Active Substance: ONDANSETRON HYDROCHLORIDE
     Dosage: UNK
     Route: 065
     Dates: start: 20230210, end: 20230210
  91. ZOFRAN [Suspect]
     Active Substance: ONDANSETRON HYDROCHLORIDE
     Dosage: UNK
     Route: 065
     Dates: start: 20230307, end: 20230307
  92. ZOFRAN [Suspect]
     Active Substance: ONDANSETRON HYDROCHLORIDE
     Dosage: UNK
     Route: 065
     Dates: start: 20230523, end: 20230523
  93. ZOFRAN [Suspect]
     Active Substance: ONDANSETRON HYDROCHLORIDE
     Dosage: UNK
     Route: 065
  94. ZOFRAN [Suspect]
     Active Substance: ONDANSETRON HYDROCHLORIDE
     Dosage: UNK
     Route: 065
  95. DAPAGLIFLOZIN [Concomitant]
     Active Substance: DAPAGLIFLOZIN
     Indication: Product used for unknown indication
     Dosage: 10 MG 1 TABLET IN THE MORNING
     Route: 065

REACTIONS (29)
  - Anaemia [Recovering/Resolving]
  - Lumbar vertebral fracture [Unknown]
  - Aortic stenosis [Unknown]
  - Atrial fibrillation [Unknown]
  - Cardiac failure [Unknown]
  - White blood cell count increased [Unknown]
  - Blood folate decreased [Unknown]
  - C-reactive protein decreased [Unknown]
  - Blood urea decreased [Unknown]
  - Pulmonary septal thickening [Unknown]
  - Asthenia [Unknown]
  - Platelet count decreased [Unknown]
  - Lung infiltration [Unknown]
  - Left atrial dilatation [Unknown]
  - Blood albumin decreased [Unknown]
  - Blood chloride decreased [Unknown]
  - C-reactive protein increased [Unknown]
  - Eosinophil count decreased [Unknown]
  - Blood urea increased [Unknown]
  - Blood creatine decreased [Unknown]
  - Blood magnesium decreased [Unknown]
  - Oedema peripheral [Unknown]
  - Protein total decreased [Unknown]
  - Aortic valve calcification [Unknown]
  - Supraventricular extrasystoles [Unknown]
  - Procalcitonin decreased [Unknown]
  - Eosinophil percentage decreased [Unknown]
  - Red cell distribution width increased [Unknown]
  - Pleural effusion [Unknown]

NARRATIVE: CASE EVENT DATE: 20220101
